FAERS Safety Report 15322194 (Version 1)
Quarter: 2018Q3

REPORT INFORMATION
  Report Type: Spontaneous
  Country: JP (occurrence: JP)
  Receive Date: 20180827
  Receipt Date: 20180827
  Transmission Date: 20181010
  Serious: Yes (Other)
  Sender: FDA-Public Use
  Company Number: JP-PFIZER INC-2018340597

PATIENT
  Weight: 113 kg

DRUGS (5)
  1. METHOTREXATE. [Suspect]
     Active Substance: METHOTREXATE
     Dosage: 5.5 G, UNK
     Dates: start: 20180726
  2. LEUCOVORIN [CALCIUM FOLINATE] [Concomitant]
     Dosage: UNK
     Dates: end: 20180730
  3. LEUCOVORIN [CALCIUM FOLINATE] [Concomitant]
     Dosage: UNK
     Dates: start: 20180806
  4. DIAMOX [ACETAZOLAMIDE] [Concomitant]
     Dosage: UNK
     Dates: start: 20180806
  5. DIAMOX [ACETAZOLAMIDE] [Concomitant]
     Dosage: UNK
     Dates: end: 20180730

REACTIONS (2)
  - Stomatitis [Unknown]
  - Mucosal erosion [Unknown]
